FAERS Safety Report 6095418-8 (Version None)
Quarter: 2009Q1

REPORT INFORMATION
  Report Type: 
  Country: None (occurrence: None)
  Receive Date: 20090227
  Receipt Date: 20080327
  Transmission Date: 20090719
  Serious: No
  Sender: FDA-Public Use
  Company Number: A0717865A

PATIENT
  Sex: Female

DRUGS (2)
  1. LAMICTAL [Suspect]
     Indication: EPILEPSY
     Dosage: 25MG PER DAY
     Route: 048
     Dates: start: 20080301, end: 20080301
  2. ANTIBIOTIC [Suspect]
     Route: 065

REACTIONS (4)
  - DRUG INTERACTION [None]
  - PRODUCT QUALITY ISSUE [None]
  - RASH ERYTHEMATOUS [None]
  - RHINITIS [None]
